FAERS Safety Report 9704861 (Version 1)
Quarter: 2013Q4

REPORT INFORMATION
  Report Type: Spontaneous
  Country: ES (occurrence: ES)
  Receive Date: 20131122
  Receipt Date: 20131122
  Transmission Date: 20140711
  Serious: Yes (Other)
  Sender: FDA-Public Use
  Company Number: ES-SA-2013SA117968

PATIENT
  Age: 48 Year
  Sex: Female

DRUGS (1)
  1. CLEXANE [Suspect]
     Indication: DEEP VEIN THROMBOSIS
     Route: 058
     Dates: start: 20130130, end: 20130215

REACTIONS (2)
  - Panniculitis [Recovering/Resolving]
  - Injection site infection [Recovering/Resolving]
